FAERS Safety Report 18224941 (Version 3)
Quarter: 2020Q4

REPORT INFORMATION
  Report Type: Spontaneous
  Country: US (occurrence: US)
  Receive Date: 20200902
  Receipt Date: 20201102
  Transmission Date: 20210113
  Serious: No
  Sender: FDA-Public Use
  Company Number: US-ASTRAZENECA-2020SF04369

PATIENT
  Age: 28476 Day
  Sex: Female
  Weight: 68.9 kg

DRUGS (2)
  1. BYDUREON [Suspect]
     Active Substance: EXENATIDE
     Indication: DIABETES MELLITUS
     Route: 058
  2. BYDUREON BCISE [Suspect]
     Active Substance: EXENATIDE
     Indication: DIABETES MELLITUS
     Route: 058
     Dates: start: 202005

REACTIONS (7)
  - Device leakage [Unknown]
  - Injection site mass [Recovering/Resolving]
  - Wrong technique in product usage process [Unknown]
  - Product dose omission issue [Unknown]
  - Drug dose omission by device [Unknown]
  - Therapeutic product effect incomplete [Unknown]
  - Injection site pain [Unknown]

NARRATIVE: CASE EVENT DATE: 202005
